FAERS Safety Report 8768279 (Version 12)
Quarter: 2014Q2

REPORT INFORMATION
  Report Type: Report from Study
  Country: GB (occurrence: GB)
  Receive Date: 20120905
  Receipt Date: 20140610
  Transmission Date: 20141212
  Serious: Yes (Hospitalization)
  Sender: FDA-Public Use
  Company Number: GB-ROCHE-1114209

PATIENT
  Age: 66 Year
  Sex: Female
  Weight: 64.6 kg

DRUGS (22)
  1. RITUXIMAB [Suspect]
     Indication: NON-HODGKIN^S LYMPHOMA UNSPECIFIED HISTOLOGY INDOLENT
     Dosage: 1.28 MG/ML CONCENTRATION, VOLUME 500ML. DATE OF LAST DOSE PRIOR TO SAE: 24/SEP/2012
     Route: 042
     Dates: start: 20120815
  2. RITUXIMAB [Suspect]
     Dosage: 1.28MG/ML CONCENTRATION, VOLUME: 500ML, DATE OF MOST RECENT DOSE PRIOR TO SAE WAS ON 24/SEP/2012.
     Route: 042
  3. PREDNISONE [Suspect]
     Indication: NON-HODGKIN^S LYMPHOMA UNSPECIFIED HISTOLOGY INDOLENT
     Dosage: LAST DOSE OF 100 MG, LAST DOSE PRIOR TO SAE: 24/SEP/2012
     Route: 048
     Dates: start: 20120815
  4. CYCLOPHOSPHAMIDE [Suspect]
     Indication: NON-HODGKIN^S LYMPHOMA UNSPECIFIED HISTOLOGY INDOLENT
     Dosage: LAST DOSE TAKEN: 1280 MG, LAST DOSE PRIOR TO SAE: 24/SEP/2012
     Route: 042
     Dates: start: 20120816
  5. VINCRISTINE [Suspect]
     Indication: NON-HODGKIN^S LYMPHOMA UNSPECIFIED HISTOLOGY INDOLENT
     Dosage: LAST DOSE TAKEN: 2 MG, LAST DOSE PRIOR TO SAE: 24/SEP/2012
     Route: 040
     Dates: start: 20120816
  6. ALLOPURINOL [Concomitant]
     Indication: TUMOUR LYSIS SYNDROME
     Route: 065
     Dates: start: 20111010, end: 20111215
  7. ALLOPURINOL [Concomitant]
     Route: 065
     Dates: start: 20120815, end: 20120829
  8. METOCLOPRAMIDE [Concomitant]
     Indication: VOMITING
     Route: 065
     Dates: start: 20111101, end: 20111101
  9. METOCLOPRAMIDE [Concomitant]
     Indication: NAUSEA
     Route: 065
     Dates: start: 20120815
  10. HYDROCORTISONE [Concomitant]
     Route: 065
     Dates: start: 20111101, end: 20111101
  11. HYDROCORTISONE [Concomitant]
     Route: 065
     Dates: start: 20120815, end: 20120817
  12. PARACETAMOL [Concomitant]
     Route: 065
     Dates: start: 20111010
  13. PARACETAMOL [Concomitant]
     Route: 065
     Dates: start: 20120815
  14. SENNA [Concomitant]
     Indication: CONSTIPATION
     Route: 065
     Dates: start: 20111010, end: 20120308
  15. SENNA [Concomitant]
     Route: 065
     Dates: start: 20120815
  16. OMEPRAZOLE [Concomitant]
     Indication: DYSPEPSIA
     Route: 065
     Dates: start: 20111010, end: 20120308
  17. OMEPRAZOLE [Concomitant]
     Indication: DYSPEPSIA
     Route: 065
     Dates: start: 20120815
  18. ONDANSETRON [Concomitant]
     Indication: NAUSEA
     Route: 065
     Dates: start: 20111011
  19. ONDANSETRON [Concomitant]
     Indication: NAUSEA
     Route: 065
     Dates: start: 20120816
  20. VORICONAZOLE [Concomitant]
     Indication: FUNGAL INFECTION
     Route: 065
     Dates: start: 20121012, end: 20121019
  21. ACICLOVIR [Concomitant]
     Indication: MOUTH ULCERATION
     Route: 065
     Dates: start: 20120922
  22. RASBURICASE [Concomitant]
     Indication: TUMOUR LYSIS SYNDROME
     Route: 065
     Dates: start: 20120815, end: 20120815

REACTIONS (4)
  - Pleural effusion [Recovered/Resolved]
  - Infusion related reaction [Recovered/Resolved]
  - Neutropenic sepsis [Recovered/Resolved]
  - Pneumonia [Recovered/Resolved]
